FAERS Safety Report 6695717-2 (Version None)
Quarter: 2010Q2

REPORT INFORMATION
  Report Type: 
  Country: None (occurrence: None)
  Receive Date: 20100426
  Receipt Date: 20100412
  Transmission Date: 20101027
  Serious: Yes (Hospitalization)
  Sender: FDA-Public Use
  Company Number: SA-RANBAXY-2010RR-33203

PATIENT
  Age: 63 Year
  Sex: Male

DRUGS (4)
  1. CIPROFLOXACIN [Suspect]
     Indication: SPONDYLITIS
  2. ETHAMBUTOL HYDROCHLORIDE [Suspect]
     Indication: SPONDYLITIS
  3. PYRAZINAMIDE [Suspect]
     Indication: SPONDYLITIS
  4. ISONIAZID [Suspect]
     Indication: SPONDYLITIS

REACTIONS (1)
  - BONE TUBERCULOSIS [None]
